FAERS Safety Report 20582913 (Version 1)
Quarter: 2022Q1

REPORT INFORMATION
  Report Type: Spontaneous
  Country: US (occurrence: US)
  Receive Date: 20220311
  Receipt Date: 20220311
  Transmission Date: 20220423
  Serious: Yes (Other)
  Sender: FDA-Public Use
  Company Number: US-MLMSERVICE-20220224-3398754-2

PATIENT
  Age: 12 Week
  Sex: Female

DRUGS (2)
  1. PROPRANOLOL [Suspect]
     Active Substance: PROPRANOLOL HYDROCHLORIDE
     Indication: Infantile haemangioma
     Route: 065
  2. PROPRANOLOL [Suspect]
     Active Substance: PROPRANOLOL HYDROCHLORIDE
     Dosage: UNKNOWN, DOSE INCREASE
     Route: 065

REACTIONS (4)
  - Drug withdrawal syndrome neonatal [Unknown]
  - Disease recurrence [Unknown]
  - Drug intolerance [Unknown]
  - Diarrhoea [Unknown]
